FAERS Safety Report 18669854 (Version 1)
Quarter: 2020Q4

REPORT INFORMATION
  Report Type: Spontaneous
  Country: US (occurrence: US)
  Receive Date: 20201228
  Receipt Date: 20201228
  Transmission Date: 20210114
  Serious: Yes (Other)
  Sender: FDA-Public Use
  Company Number: US-AMGEN-USASP2020208291

PATIENT
  Age: 20 Year
  Sex: Male

DRUGS (6)
  1. VINCRISTINE [Concomitant]
     Active Substance: VINCRISTINE
  2. DAUNORUBICIN [Concomitant]
     Active Substance: DAUNORUBICIN
  3. PEGASPARGASE [Concomitant]
     Active Substance: PEGASPARGASE
  4. PREDNISOLONE. [Concomitant]
     Active Substance: PREDNISOLONE
  5. RITUXIMAB. [Concomitant]
     Active Substance: RITUXIMAB
  6. BLINATUMOMAB [Suspect]
     Active Substance: BLINATUMOMAB
     Indication: B PRECURSOR TYPE ACUTE LEUKAEMIA
     Dosage: UNK
     Route: 065

REACTIONS (3)
  - Thrombocytopenia [Unknown]
  - Leukaemic infiltration extramedullary [Unknown]
  - Normocytic anaemia [Unknown]
